FAERS Safety Report 5127625-2 (Version None)
Quarter: 2006Q4

REPORT INFORMATION
  Report Type: 
  Country: None (occurrence: None)
  Receive Date: 20061011
  Receipt Date: 20061002
  Transmission Date: 20070319
  Serious: Yes (Hospitalization)
  Sender: FDA-Public Use
  Company Number: GXKR2006GB06133

PATIENT
  Age: 38 Week
  Sex: Female

DRUGS (2)
  1. CLARITHROMYCIN [Suspect]
     Indication: RHINORRHOEA
  2. TRANSFER FACTOR (TRANSFER FACTOR)\ [Concomitant]

REACTIONS (11)
  - BLOOD CREATININE INCREASED [None]
  - BLOOD PRESSURE INCREASED [None]
  - C-REACTIVE PROTEIN INCREASED [None]
  - HEADACHE [None]
  - MOUTH ULCERATION [None]
  - NIGHT SWEATS [None]
  - PYREXIA [None]
  - RASH [None]
  - RED BLOOD CELL SEDIMENTATION RATE INCREASED [None]
  - TACHYCARDIA [None]
  - TUBULOINTERSTITIAL NEPHRITIS [None]
